FAERS Safety Report 12906628 (Version 1)
Quarter: 2016Q4

REPORT INFORMATION
  Report Type: Spontaneous
  Country: US (occurrence: US)
  Receive Date: 20161101
  Receipt Date: 20161101
  Transmission Date: 20170207
  Serious: Yes (Disabling)
  Sender: FDA-Public Use
  Company Number: None

PATIENT
  Age: 53 Year
  Sex: Female

DRUGS (4)
  1. ATENOLOL. [Concomitant]
     Active Substance: ATENOLOL
  2. FENTANYL MALLINCKRODT [Suspect]
     Active Substance: FENTANYL
     Indication: BACK PAIN
     Dosage: OTHER STRENGTH:MCG/HR;QUANTITY:1 PATCH(ES);OTHER FREQUENCY:EVERY 72 HOURS; TRANSDERMAL?
     Route: 062
  3. DIAZEPAM. [Concomitant]
     Active Substance: DIAZEPAM
  4. AMLODIPINE [Concomitant]
     Active Substance: AMLODIPINE BESYLATE

REACTIONS (2)
  - Ventricular extrasystoles [None]
  - Obsessive-compulsive disorder [None]

NARRATIVE: CASE EVENT DATE: 20160801
